FAERS Safety Report 10038667 (Version 1)
Quarter: 2014Q1

REPORT INFORMATION
  Report Type: Report from Study
  Country: US (occurrence: US)
  Receive Date: 20140326
  Receipt Date: 20140326
  Transmission Date: 20141002
  Serious: Yes (Hospitalization)
  Sender: FDA-Public Use
  Company Number: US-ACTELION-A-US2014-96316

PATIENT
  Age: 79 Year
  Sex: Female

DRUGS (9)
  1. MACITENTAN [Suspect]
     Indication: PULMONARY ARTERIAL HYPERTENSION
     Dosage: 10 MG, QD
     Route: 048
     Dates: start: 20140212
  2. ZETIA [Concomitant]
  3. GLUCOTROL [Concomitant]
  4. ATENOLOL [Concomitant]
  5. ISOSORBIDE [Concomitant]
  6. NITROGLYCERIN [Concomitant]
  7. ALBUTEROL [Concomitant]
  8. IPRATROPIUM BROMIDE [Concomitant]
  9. CADUET [Concomitant]

REACTIONS (2)
  - Renal disorder [Recovering/Resolving]
  - Dyspnoea [Recovering/Resolving]
